FAERS Safety Report 4731919-X (Version None)
Quarter: 2005Q3

REPORT INFORMATION
  Report Type: 
  Country: None (occurrence: None)
  Receive Date: 20050725
  Receipt Date: 20041027
  Transmission Date: 20060218
  Serious: No
  Sender: FDA-Public Use
  Company Number: WAES 0410USA04186

PATIENT
  Age: 54 Year
  Sex: Female

DRUGS (2)
  1. VIOXX [Suspect]
     Dosage: PO
     Route: 048
     Dates: start: 20040201, end: 20040601
  2. ZESTRIL [Concomitant]

REACTIONS (4)
  - ANGIONEUROTIC OEDEMA [None]
  - CHEST DISCOMFORT [None]
  - CHEST PAIN [None]
  - GASTROINTESTINAL PAIN [None]
